FAERS Safety Report 15619137 (Version 1)
Quarter: 2018Q4

REPORT INFORMATION
  Report Type: Spontaneous
  Country: FR (occurrence: FR)
  Receive Date: 20181114
  Receipt Date: 20181114
  Transmission Date: 20190205
  Serious: Yes (Hospitalization)
  Sender: FDA-Public Use
  Company Number: FR-SA-2017SA226109

PATIENT
  Age: 35 Year
  Sex: Female
  Weight: 58 kg

DRUGS (13)
  1. LOVENOX [Suspect]
     Active Substance: ENOXAPARIN SODIUM
     Indication: THROMBOSIS PROPHYLAXIS
     Dosage: UNK UNK,UNK
     Route: 058
     Dates: start: 20171001
  2. ZOPICLONE ZENTIVA [Suspect]
     Active Substance: ZOPICLONE
     Indication: INSOMNIA
     Dosage: UNK UNK,UNK
     Route: 048
     Dates: start: 20171001
  3. CEFTAZIDIME. [Suspect]
     Active Substance: CEFTAZIDIME
     Indication: STAPHYLOCOCCAL INFECTION
     Dosage: 3 G,QD
     Route: 042
     Dates: start: 20171001, end: 20171001
  4. URBANYL [Suspect]
     Active Substance: CLOBAZAM
     Dosage: UNK UNK,UNK
     Route: 048
     Dates: start: 20171018, end: 20171023
  5. CALCIUM FOLINATE [Suspect]
     Active Substance: LEUCOVORIN CALCIUM
     Indication: ANAEMIA PROPHYLAXIS
     Dosage: UNK UNK,UNK
     Route: 048
     Dates: start: 20171013, end: 20171023
  6. VANCOMYCINE SANDOZ [Suspect]
     Active Substance: VANCOMYCIN
     Indication: STAPHYLOCOCCAL INFECTION
     Dosage: 3 G,QD
     Route: 042
     Dates: start: 20171001, end: 20171023
  7. NEURONTIN [Concomitant]
     Active Substance: GABAPENTIN
     Dosage: 300 MG,UNK
     Route: 065
     Dates: start: 20170207
  8. LINEZOLID. [Concomitant]
     Active Substance: LINEZOLID
     Dosage: 600 MG,BID
     Route: 065
  9. URBANYL [Suspect]
     Active Substance: CLOBAZAM
     Indication: EPILEPSY
     Dosage: 5 MG,UNK
     Route: 048
     Dates: start: 20170207
  10. SULFAMETHOXAZOLE/TRIMETHOPRIM [Suspect]
     Active Substance: SULFAMETHOXAZOLE\TRIMETHOPRIM
     Indication: INFECTION
     Dosage: 2 TABLETS MORNING AND EVENING, 1 TABLET AT MIDDAY
     Route: 048
     Dates: start: 20171013, end: 20171023
  11. LAMICTAL [Concomitant]
     Active Substance: LAMOTRIGINE
     Dosage: 75 MG IN THE MORNING AND 50 MG IN THE EVENING
     Route: 065
     Dates: start: 20170207
  12. LYRICA [Concomitant]
     Active Substance: PREGABALIN
     Dosage: UNK UNK,UNK
     Route: 065
     Dates: start: 20170411
  13. VANCOMYCINE SANDOZ [Suspect]
     Active Substance: VANCOMYCIN
     Dosage: 2.5 MG,QD
     Route: 042
     Dates: end: 20171023

REACTIONS (1)
  - Rash maculo-papular [Recovered/Resolved]

NARRATIVE: CASE EVENT DATE: 20171022
